FAERS Safety Report 20900678 (Version 1)
Quarter: 2022Q2

REPORT INFORMATION
  Report Type: Spontaneous
  Country: US (occurrence: None)
  Receive Date: 20220531
  Receipt Date: 20220531
  Transmission Date: 20220721
  Serious: Yes (Other)
  Sender: FDA-Public Use
  Company Number: None

PATIENT
  Sex: Male

DRUGS (1)
  1. BEBTELOVIMAB [Suspect]
     Active Substance: BEBTELOVIMAB
     Indication: COVID-19 treatment

REACTIONS (6)
  - Dysphagia [None]
  - Cough [None]
  - Dry mouth [None]
  - Sensation of foreign body [None]
  - Oropharyngeal discomfort [None]
  - Dialysis [None]

NARRATIVE: CASE EVENT DATE: 20220526
